FAERS Safety Report 6083567-X (Version None)
Quarter: 2009Q1

REPORT INFORMATION
  Report Type: 
  Country: None (occurrence: None)
  Receive Date: 20090219
  Receipt Date: 20090210
  Transmission Date: 20090719
  Serious: Yes (Death)
  Sender: FDA-Public Use
  Company Number: JP-BRISTOL-MYERS SQUIBB COMPANY-14492003

PATIENT
  Age: 33 Year
  Sex: Male
  Weight: 132 kg

DRUGS (7)
  1. ABILIFY [Suspect]
     Indication: SCHIZOPHRENIA
     Dosage: 1 DF= 12-24MG,DEC 2008 - 23JAN09.
     Route: 048
     Dates: start: 20061001
  2. TRICYCLIC ANTIDEPRESSANTS [Concomitant]
  3. LEXOTAN [Concomitant]
     Dosage: TAB
     Dates: start: 20061015, end: 20090123
  4. HIRNAMIN [Concomitant]
     Dosage: TAB
     Dates: start: 20061015, end: 20090123
  5. EXCEGRAN [Concomitant]
     Dosage: TAB
     Dates: start: 20061015, end: 20090123
  6. ROHYPNOL [Concomitant]
     Dosage: TAB
     Dates: start: 20061015, end: 20090123
  7. LUDIOMIL [Concomitant]
     Dosage: TAB
     Dates: start: 20061015, end: 20090123

REACTIONS (1)
  - SUDDEN DEATH [None]
